FAERS Safety Report 25074517 (Version 1)
Quarter: 2025Q1

REPORT INFORMATION
  Report Type: Spontaneous
  Country: CN (occurrence: CN)
  Receive Date: 20250313
  Receipt Date: 20250313
  Transmission Date: 20250409
  Serious: Yes (Hospitalization, Other)
  Sender: BEIGENE
  Company Number: CN-BEIGENE-BGN-2025-003652

PATIENT
  Age: 62 Year
  Weight: 58 kg

DRUGS (11)
  1. TISLELIZUMAB [Suspect]
     Active Substance: TISLELIZUMAB
     Indication: Squamous cell carcinoma of lung
  2. TISLELIZUMAB [Suspect]
     Active Substance: TISLELIZUMAB
  3. TISLELIZUMAB [Suspect]
     Active Substance: TISLELIZUMAB
     Route: 041
  4. TISLELIZUMAB [Suspect]
     Active Substance: TISLELIZUMAB
     Route: 041
  5. TISLELIZUMAB [Suspect]
     Active Substance: TISLELIZUMAB
  6. TISLELIZUMAB [Suspect]
     Active Substance: TISLELIZUMAB
  7. TISLELIZUMAB [Suspect]
     Active Substance: TISLELIZUMAB
     Route: 041
  8. TISLELIZUMAB [Suspect]
     Active Substance: TISLELIZUMAB
     Route: 041
  9. PACLITAXEL [Concomitant]
     Active Substance: PACLITAXEL
     Indication: Squamous cell carcinoma of lung
  10. PACLITAXEL [Concomitant]
     Active Substance: PACLITAXEL
  11. NEDAPLATIN [Concomitant]
     Active Substance: NEDAPLATIN
     Indication: Squamous cell carcinoma of lung

REACTIONS (7)
  - Immune-mediated lung disease [Recovering/Resolving]
  - Asthenia [Recovering/Resolving]
  - Interstitial lung disease [Unknown]
  - Mediastinal lymphadenectomy [Recovering/Resolving]
  - Decreased appetite [Recovering/Resolving]
  - Eating disorder [Recovering/Resolving]
  - Discomfort [Recovering/Resolving]
